FAERS Safety Report 17871019 (Version 1)
Quarter: 2020Q2

REPORT INFORMATION
  Report Type: Other
  Country: CA (occurrence: CA)
  Receive Date: 20200608
  Receipt Date: 20200608
  Transmission Date: 20200714
  Serious: Yes (Hospitalization, Other)
  Sender: FDA-Public Use
  Company Number: CA-APOTEX-2020AP011713

PATIENT
  Age: 63 Year
  Sex: Female
  Weight: 58 kg

DRUGS (2)
  1. SPORANOX [Suspect]
     Active Substance: ITRACONAZOLE
     Indication: BRONCHOPULMONARY ASPERGILLOSIS ALLERGIC
     Dosage: 200 DF, BID
     Route: 065
  2. APO-AMOXI CLAV 875/125 [Suspect]
     Active Substance: AMOXICILLIN\CLAVULANATE POTASSIUM
     Indication: PNEUMONIA
     Dosage: 1 DF, BID
     Route: 065

REACTIONS (9)
  - Chromaturia [Unknown]
  - Pruritus [Unknown]
  - Liver function test abnormal [Unknown]
  - Faeces pale [Unknown]
  - Nausea [Unknown]
  - Hyperbilirubinaemia [Unknown]
  - Hepatic function abnormal [Unknown]
  - Jaundice [Unknown]
  - Decreased appetite [Unknown]
